FAERS Safety Report 7240642-1 (Version None)
Quarter: 2011Q1

REPORT INFORMATION
  Report Type: 
  Country: None (occurrence: None)
  Receive Date: 20110124
  Receipt Date: 20100707
  Transmission Date: 20110831
  Serious: No
  Sender: FDA-Public Use
  Company Number: US-KINGPHARMUSA00001-K201000867

PATIENT
  Sex: Male
  Weight: 8.698 kg

DRUGS (2)
  1. EPIPEN JR. [Suspect]
     Indication: ANAPHYLACTIC REACTION
     Dosage: 0.15 MG, SINGLE
     Route: 030
     Dates: start: 20100706, end: 20100706
  2. PREVACID [Concomitant]
     Indication: GASTROOESOPHAGEAL REFLUX DISEASE
     Dosage: UNK

REACTIONS (2)
  - INJECTION SITE INJURY [None]
  - DRUG INEFFECTIVE [None]
